FAERS Safety Report 9278759 (Version 1)
Quarter: 2013Q2

REPORT INFORMATION
  Report Type: Spontaneous
  Country: IN (occurrence: IN)
  Receive Date: 20130508
  Receipt Date: 20130508
  Transmission Date: 20140414
  Serious: Yes (Death)
  Sender: FDA-Public Use
  Company Number: IN-PFIZER INC-2013101126

PATIENT
  Age: 33 Year
  Sex: Female

DRUGS (1)
  1. SUTENT [Suspect]
     Indication: GASTROINTESTINAL STROMAL TUMOUR
     Dosage: 37.5 MG, 1X/DAY
     Route: 048
     Dates: start: 20130129, end: 20130301

REACTIONS (1)
  - Cardiac arrest [Fatal]
